FAERS Safety Report 13027597 (Version 1)
Quarter: 2016Q4

REPORT INFORMATION
  Report Type: Spontaneous
  Country: HU (occurrence: HU)
  Receive Date: 20161214
  Receipt Date: 20161214
  Transmission Date: 20170207
  Serious: Yes (Death, Other)
  Sender: FDA-Public Use
  Company Number: HU-ELI_LILLY_AND_COMPANY-HU201612000856

PATIENT
  Age: 59 Year
  Sex: Female

DRUGS (2)
  1. ZOLEDRON [Suspect]
     Active Substance: ZOLEDRONIC ACID
     Indication: ADENOCARCINOMA
  2. ALIMTA [Suspect]
     Active Substance: PEMETREXED DISODIUM
     Indication: ADENOCARCINOMA
     Dosage: UNK, UNKNOWN
     Route: 065
     Dates: start: 201405

REACTIONS (4)
  - Spinal compression fracture [Unknown]
  - Lumbar spinal stenosis [Unknown]
  - Intervertebral disc protrusion [Unknown]
  - Death [Fatal]
